FAERS Safety Report 8215524-9 (Version None)
Quarter: 2012Q1

REPORT INFORMATION
  Report Type: 
  Country: None (occurrence: None)
  Receive Date: 20120316
  Receipt Date: 20120306
  Transmission Date: 20120608
  Serious: Yes (Life-Threatening, Hospitalization)
  Sender: FDA-Public Use
  Company Number: FR-JNJFOC-20120303301

PATIENT
  Age: 81 Year
  Sex: Female

DRUGS (9)
  1. REMICADE [Suspect]
     Indication: RHEUMATOID ARTHRITIS
     Route: 042
     Dates: start: 20010928, end: 20050201
  2. NEXIUM [Concomitant]
  3. OSTRAM D3 [Concomitant]
     Dosage: DOSE= ^1DF^ QD
  4. RHEUMATREX [Suspect]
     Indication: RHEUMATOID ARTHRITIS
     Route: 048
     Dates: start: 20111016, end: 20111030
  5. ACETAMINOPHEN [Concomitant]
  6. ACETYLLEUCINE [Concomitant]
     Dosage: 4 TAB QD
  7. ENBREL [Suspect]
     Indication: RHEUMATOID ARTHRITIS
     Route: 058
     Dates: start: 20050601, end: 20111030
  8. MEDROL [Concomitant]
  9. CELIPROLOL [Concomitant]

REACTIONS (1)
  - GALLBLADDER CANCER [None]
